FAERS Safety Report 8225778-0 (Version None)
Quarter: 2012Q1

REPORT INFORMATION
  Report Type: 
  Country: None (occurrence: None)
  Receive Date: 20120321
  Receipt Date: 20120312
  Transmission Date: 20120608
  Serious: Yes (Hospitalization)
  Sender: FDA-Public Use
  Company Number: FR-ELI_LILLY_AND_COMPANY-FR201108008828

PATIENT
  Sex: Female

DRUGS (9)
  1. CORVASAL [Concomitant]
     Dosage: 2 MG, TID
  2. ALDACTAZINE [Concomitant]
     Dosage: 25 MG, QD
  3. FORTEO [Suspect]
     Indication: OSTEOPOROSIS
     Dosage: 20 UG, QD
     Route: 058
     Dates: start: 20100219, end: 20110728
  4. LOVENOX [Concomitant]
     Indication: ISCHAEMIC STROKE
     Dosage: UNK
  5. CALCIUM CARBONATE [Concomitant]
     Dosage: 1 DF, QD
  6. ACETAMINOPHEN [Concomitant]
     Dosage: 500 MG, PRN
  7. PREVISCAN [Concomitant]
     Indication: ISCHAEMIC STROKE
     Dosage: 20 MG, UNK
  8. DIGOXIN [Concomitant]
     Dosage: 125 MG, QD
  9. NEFOPAM [Concomitant]
     Dosage: 20 MG, UNK

REACTIONS (3)
  - OSTEOARTHRITIS [None]
  - ROTATOR CUFF SYNDROME [None]
  - PAIN [None]
